FAERS Safety Report 8841984 (Version 1)
Quarter: 2012Q4

REPORT INFORMATION
  Report Type: 
  Country: US (occurrence: US)
  Receive Date: 20121016
  Receipt Date: 20121016
  Transmission Date: 20130627
  Serious: No
  Sender: FDA-Public Use
  Company Number: US-BAYER-2012-104966

PATIENT

DRUGS (4)
  1. ALEVE CAPLET/TABLET,MIDOL EXTENDED RELIEF CAPLET [Suspect]
     Indication: TENDON PAIN
     Route: 048
  2. TYLENOL #3 [Concomitant]
  3. CYMBALTA [Concomitant]
  4. ADVIL [Concomitant]
     Dosage: UNK

REACTIONS (1)
  - Tendon pain [None]
